FAERS Safety Report 25624593 (Version 4)
Quarter: 2025Q3

REPORT INFORMATION
  Report Type: Report from Study
  Country: US (occurrence: US)
  Receive Date: 20250730
  Receipt Date: 20250912
  Transmission Date: 20251021
  Serious: No
  Sender: SANDOZ
  Company Number: US-SANDOZ-SDZ2025US053742

PATIENT
  Age: 14 Year
  Sex: Male

DRUGS (2)
  1. OMNITROPE [Suspect]
     Active Substance: SOMATROPIN
     Indication: Short stature
     Route: 058
     Dates: start: 20250725
  2. OMNITROPE [Suspect]
     Active Substance: SOMATROPIN
     Indication: Short stature
     Route: 058
     Dates: start: 20250725

REACTIONS (6)
  - Injection site haemorrhage [Not Recovered/Not Resolved]
  - Injection site bruising [Not Recovered/Not Resolved]
  - Injection site nodule [Not Recovered/Not Resolved]
  - Product use in unapproved indication [Unknown]
  - Wrong technique in device usage process [Unknown]
  - Needle issue [Unknown]

NARRATIVE: CASE EVENT DATE: 20250725
